FAERS Safety Report 11371127 (Version 1)
Quarter: 2015Q3

REPORT INFORMATION
  Report Type: Spontaneous
  Country: US (occurrence: US)
  Receive Date: 20150812
  Receipt Date: 20150812
  Transmission Date: 20151125
  Serious: No
  Sender: FDA-Public Use
  Company Number: US-SA-2015SA092842

PATIENT
  Sex: Female

DRUGS (2)
  1. KYNAMRO [Suspect]
     Active Substance: MIPOMERSEN SODIUM
     Indication: AMINO ACID METABOLISM DISORDER
     Route: 058
     Dates: start: 20140805
  2. KYNAMRO [Suspect]
     Active Substance: MIPOMERSEN SODIUM
     Indication: AMINO ACID METABOLISM DISORDER
     Route: 058

REACTIONS (3)
  - Headache [Unknown]
  - Injection site rash [Unknown]
  - Nausea [Unknown]
